FAERS Safety Report 17951593 (Version 1)
Quarter: 2020Q2

REPORT INFORMATION
  Report Type: Spontaneous
  Country: US (occurrence: US)
  Receive Date: 20200626
  Receipt Date: 20200626
  Transmission Date: 20200714
  Serious: No
  Sender: FDA-Public Use
  Company Number: US-ASTRAZENECA-2020SE46514

PATIENT
  Age: 31 Year
  Sex: Female
  Weight: 61.7 kg

DRUGS (6)
  1. REMODULIN [Suspect]
     Active Substance: TREPROSTINIL
     Indication: PULMONARY ARTERIAL HYPERTENSION
     Dosage: 0.013UG/KG CONTINUOUSLY
     Route: 058
  2. REMODULIN [Suspect]
     Active Substance: TREPROSTINIL
     Indication: PULMONARY ARTERIAL HYPERTENSION
     Dosage: 0.015UG/KG CONTINUOUSLY
     Route: 058
  3. REMODULIN [Suspect]
     Active Substance: TREPROSTINIL
     Indication: PULMONARY ARTERIAL HYPERTENSION
     Dosage: 0.01UG/KG CONTINUOUSLY
     Route: 058
     Dates: start: 20200221
  4. NEXIUM [Suspect]
     Active Substance: ESOMEPRAZOLE MAGNESIUM
     Indication: PRODUCT USED FOR UNKNOWN INDICATION
     Dosage: UNKNOWN
     Route: 042
  5. ADEMPAS [Suspect]
     Active Substance: RIOCIGUAT
     Indication: PRODUCT USED FOR UNKNOWN INDICATION
     Route: 058
  6. OPSUMIT [Concomitant]
     Active Substance: MACITENTAN

REACTIONS (13)
  - Sinus disorder [Unknown]
  - Respiratory tract congestion [Unknown]
  - Fatigue [Unknown]
  - Injection site pain [Recovering/Resolving]
  - Abdominal pain upper [Unknown]
  - Cough [Unknown]
  - Dyspepsia [Unknown]
  - Headache [Unknown]
  - Vomiting [Unknown]
  - Diarrhoea [Unknown]
  - Device use error [Unknown]
  - Sinus congestion [Unknown]
  - Nausea [Unknown]

NARRATIVE: CASE EVENT DATE: 2020
